FAERS Safety Report 7097341-9 (Version None)
Quarter: 2010Q4

REPORT INFORMATION
  Report Type: 
  Country: None (occurrence: None)
  Receive Date: 20101111
  Receipt Date: 20101108
  Transmission Date: 20110411
  Serious: Yes (Other)
  Sender: FDA-Public Use
  Company Number: GB-PFIZER INC-2010143369

PATIENT
  Age: 14 Year
  Sex: Female

DRUGS (1)
  1. DEPO-PROVERA [Suspect]
     Indication: CONTRACEPTION
     Dosage: 150 MG, UNK
     Route: 030
     Dates: start: 20090902, end: 20100721

REACTIONS (5)
  - COUGH [None]
  - DERMATITIS ALLERGIC [None]
  - OEDEMA PERIPHERAL [None]
  - SWELLING FACE [None]
  - WHEEZING [None]
